FAERS Safety Report 5381620-7 (Version None)
Quarter: 2007Q2

REPORT INFORMATION
  Report Type: 
  Country: None (occurrence: None)
  Receive Date: 20070629
  Receipt Date: 20070319
  Transmission Date: 20071010
  Serious: Yes (Other)
  Sender: FDA-Public Use
  Company Number: A03200703210

PATIENT
  Age: 69 Year
  Sex: Female

DRUGS (3)
  1. AMBIEN [Suspect]
     Indication: INSOMNIA
     Dosage: 12.5 MG ONCE - ORAL
     Route: 048
     Dates: start: 20070316, end: 20070317
  2. LEVOTHYROXINE SODIUM [Concomitant]
  3. PAROXETINE HYDROCHLORIDE [Concomitant]

REACTIONS (9)
  - AMNESIA [None]
  - DISORIENTATION [None]
  - DIZZINESS [None]
  - FALL [None]
  - HALLUCINATION, VISUAL [None]
  - RESTLESSNESS [None]
  - SLEEP TALKING [None]
  - SLEEP WALKING [None]
  - URINARY INCONTINENCE [None]
